FAERS Safety Report 13577471 (Version 1)
Quarter: 2017Q2

REPORT INFORMATION
  Report Type: Spontaneous
  Country: CH (occurrence: CH)
  Receive Date: 20170524
  Receipt Date: 20170524
  Transmission Date: 20170830
  Serious: Yes (Hospitalization, Other)
  Sender: FDA-Public Use
  Company Number: PHHY2017CH067884

PATIENT
  Age: 0 Day
  Sex: Male
  Weight: 2.2 kg

DRUGS (26)
  1. VELBE [Suspect]
     Active Substance: VINBLASTINE SULFATE
     Dosage: 6 MG/M2, CYCLE 3
     Route: 064
     Dates: start: 20160923, end: 20161017
  2. DACIN [Suspect]
     Active Substance: DACARBAZINE
     Indication: EXPOSURE DURING PREGNANCY
     Dosage: 375 MG/M2,  (680 MG) CYCLE 1
     Route: 064
     Dates: start: 20160729, end: 20160812
  3. NEUPOGEN [Suspect]
     Active Substance: FILGRASTIM
     Indication: EXPOSURE DURING PREGNANCY
     Dosage: 1 DF, ONCE/SINGLE (30X106 UNITS)
     Route: 064
     Dates: start: 201608, end: 201608
  4. VELBE [Suspect]
     Active Substance: VINBLASTINE SULFATE
     Dosage: 6 MG/M2, CYCLE 2
     Route: 064
     Dates: start: 20160826, end: 20160909
  5. SOLU MODERIN [Suspect]
     Active Substance: METHYLPREDNISOLONE SODIUM SUCCINATE
     Indication: EXPOSURE DURING PREGNANCY
     Dosage: 125 MG, UNK CYCLE 1
     Route: 064
     Dates: start: 20160729, end: 20160812
  6. FOLIC ACID. [Concomitant]
     Active Substance: FOLIC ACID
     Indication: PRODUCT USED FOR UNKNOWN INDICATION
     Dosage: UNK
     Route: 065
     Dates: start: 201609, end: 201611
  7. ZOFRAN [Suspect]
     Active Substance: ONDANSETRON HYDROCHLORIDE
     Dosage: 8 MG, UNK (CYCLE 2)
     Route: 064
     Dates: start: 20160826, end: 20160909
  8. ZOFRAN [Suspect]
     Active Substance: ONDANSETRON HYDROCHLORIDE
     Dosage: 8 MG, UNK (CYCLE 3)
     Route: 064
     Dates: start: 20160923, end: 20161017
  9. DOXORUBICINE [Suspect]
     Active Substance: DOXORUBICIN
     Indication: EXPOSURE DURING PREGNANCY
     Dosage: 25 MG/M2, UNK (45 MG) CYCLE 1
     Route: 064
     Dates: start: 20160729, end: 20160812
  10. DOXORUBICINE [Suspect]
     Active Substance: DOXORUBICIN
     Dosage: 25 MG/M2, UNK (45 MG) CYCLE 4
     Route: 064
     Dates: start: 20161216, end: 20170106
  11. DACIN [Suspect]
     Active Substance: DACARBAZINE
     Dosage: 375 MG/M2,  (680 MG) CYCLE 3
     Route: 064
     Dates: start: 20160923
  12. SOLU MODERIN [Suspect]
     Active Substance: METHYLPREDNISOLONE SODIUM SUCCINATE
     Dosage: 125 MG, UNK CYCLE 3
     Route: 064
     Dates: start: 20160923, end: 20161017
  13. VELBE [Suspect]
     Active Substance: VINBLASTINE SULFATE
     Indication: EXPOSURE DURING PREGNANCY
     Dosage: 6 MG/M2, CYCLE 1
     Route: 064
     Dates: start: 20160729, end: 20160812
  14. EMEND [Suspect]
     Active Substance: APREPITANT
     Indication: EXPOSURE DURING PREGNANCY
     Dosage: 125 MG, UNK
     Route: 065
     Dates: start: 20160729
  15. SOLU MODERIN [Suspect]
     Active Substance: METHYLPREDNISOLONE SODIUM SUCCINATE
     Dosage: 125 MG, UNK CYCLE 2
     Route: 064
     Dates: start: 20160826, end: 20160909
  16. DOXORUBICINE [Suspect]
     Active Substance: DOXORUBICIN
     Dosage: 25 MG/M2, UNK (45 MG ) CYCLE 2
     Route: 064
     Dates: start: 20160826, end: 20160909
  17. DOXORUBICINE [Suspect]
     Active Substance: DOXORUBICIN
     Dosage: 25 MG/M2, UNK (45 MG) CYCLE 3
     Route: 064
     Dates: start: 20160923, end: 20161017
  18. BLEOMYCIN [Suspect]
     Active Substance: BLEOMYCIN SULFATE
     Dosage: 10,000 UNITS/M2 (18,000 UNITS/M2) CYCLE 2
     Route: 064
     Dates: start: 20160826, end: 20160909
  19. DACIN [Suspect]
     Active Substance: DACARBAZINE
     Dosage: 375 MG/M2,  (680 MG) CYCLE 2
     Route: 064
     Dates: start: 20160826, end: 20160909
  20. VITAMIN B12 [Concomitant]
     Active Substance: CYANOCOBALAMIN
     Indication: PRODUCT USED FOR UNKNOWN INDICATION
     Dosage: UNK
     Route: 065
     Dates: start: 201609, end: 201611
  21. BLEOMYCIN [Suspect]
     Active Substance: BLEOMYCIN SULFATE
     Indication: EXPOSURE DURING PREGNANCY
     Dosage: 10,000 UNITS/M2 (18000 UNITS) CYCLE 1
     Route: 064
     Dates: start: 20160729, end: 20160812
  22. EUTHYROX [Concomitant]
     Active Substance: LEVOTHYROXINE SODIUM
     Indication: PRODUCT USED FOR UNKNOWN INDICATION
     Dosage: 25 UG, QD
     Route: 065
     Dates: start: 20160624
  23. ZOFRAN [Suspect]
     Active Substance: ONDANSETRON HYDROCHLORIDE
     Indication: EXPOSURE DURING PREGNANCY
     Dosage: 8 MG, UNK (CYCLE 1)
     Route: 064
     Dates: start: 20160729, end: 20160812
  24. BLEOMYCIN [Suspect]
     Active Substance: BLEOMYCIN SULFATE
     Dosage: 10,000 UNITS/M2 (18,000 UNITS/M2) CYCLE 3
     Route: 064
     Dates: start: 20160923
  25. EMEND [Suspect]
     Active Substance: APREPITANT
     Dosage: 80 MG, UNK
     Route: 064
     Dates: start: 20160730
  26. GYNEFAM XL [Concomitant]
     Indication: PRODUCT USED FOR UNKNOWN INDICATION
     Dosage: UNK
     Route: 065
     Dates: start: 2016, end: 2016

REACTIONS (3)
  - Hyperbilirubinaemia neonatal [Unknown]
  - Neonatal respiratory distress syndrome [Unknown]
  - Small for dates baby [Unknown]

NARRATIVE: CASE EVENT DATE: 20161124
